FAERS Safety Report 9918191 (Version 3)
Quarter: 2016Q3

REPORT INFORMATION
  Report Type: Report from Study
  Country: US (occurrence: US)
  Receive Date: 20140223
  Receipt Date: 20160815
  Transmission Date: 20161109
  Serious: Yes (Hospitalization, Other)
  Sender: FDA-Public Use
  Company Number: US-MERCK-1303USA012908

PATIENT
  Age: 52 Year
  Sex: Female
  Weight: 53.52 kg

DRUGS (14)
  1. CYCLOPHOSPHAMIDE. [Suspect]
     Active Substance: CYCLOPHOSPHAMIDE
     Dosage: 980 MG, QOW
     Route: 042
     Dates: start: 20130314, end: 20130425
  2. PROCHLORPERAZINE MALEATE. [Concomitant]
     Active Substance: PROCHLORPERAZINE MALEATE
     Indication: VOMITING
  3. DOCUSATE SODIUM. [Concomitant]
     Active Substance: DOCUSATE SODIUM
     Indication: CONSTIPATION
     Dosage: 250 MG, PRN
     Route: 048
  4. TRASTUZUMAB [Suspect]
     Active Substance: TRASTUZUMAB
     Dosage: 236 MG, QW
     Route: 042
     Dates: start: 20121217, end: 20130307
  5. PROCHLORPERAZINE MALEATE. [Concomitant]
     Active Substance: PROCHLORPERAZINE MALEATE
     Indication: NAUSEA
     Dosage: 10 MG, PRN
     Route: 048
     Dates: start: 20130314
  6. SENNOSIDES. [Concomitant]
     Active Substance: SENNOSIDES
     Indication: CONSTIPATION
     Dosage: 8.6 MG, PRN
     Route: 048
  7. MK-2206 [Suspect]
     Active Substance: INVESTIGATIONAL PRODUCT
     Indication: BREAST CANCER
     Dosage: 135 MG, QW
     Route: 048
     Dates: start: 20121217, end: 20130307
  8. DOXORUBICIN [Suspect]
     Active Substance: DOXORUBICIN
     Dosage: 98 MG, QOW
     Route: 042
     Dates: start: 20130314, end: 20130425
  9. ONDANSETRON [Concomitant]
     Active Substance: ONDANSETRON
     Indication: VOMITING
     Dosage: 8 MG, PRN
     Route: 048
     Dates: start: 20130314
  10. PEGFILGRASTIM [Concomitant]
     Active Substance: PEGFILGRASTIM
     Indication: NEUTROPENIA
     Dosage: 6MG/0.6ML, QW
     Route: 058
     Dates: start: 20130315, end: 20130426
  11. ONDANSETRON [Concomitant]
     Active Substance: ONDANSETRON
     Indication: NAUSEA
  12. CIPROFLOXACIN. [Suspect]
     Active Substance: CIPROFLOXACIN
     Indication: ANTIBIOTIC THERAPY
     Dosage: 500 MG, BID
     Route: 048
     Dates: start: 20130505, end: 20130510
  13. PACLITAXEL. [Suspect]
     Active Substance: PACLITAXEL
     Dosage: 133 MG, QW
     Route: 042
     Dates: start: 20121217, end: 20130307
  14. DEXAMETHASONE. [Concomitant]
     Active Substance: DEXAMETHASONE
     Dosage: 20 MG/50 ML, PRN
     Route: 042

REACTIONS (3)
  - Febrile neutropenia [Recovered/Resolved]
  - Enterocolitis infectious [Recovered/Resolved]
  - Febrile neutropenia [Recovered/Resolved]

NARRATIVE: CASE EVENT DATE: 20130321
